FAERS Safety Report 9360011 (Version 1)
Quarter: 2013Q2

REPORT INFORMATION
  Report Type: Spontaneous
  Country: US (occurrence: None)
  Receive Date: 20130620
  Receipt Date: 20130620
  Transmission Date: 20140414
  Serious: Yes (Other)
  Sender: FDA-Public Use
  Company Number: None

PATIENT
  Age: 50 Year
  Sex: Female

DRUGS (1)
  1. GAMUNEX-C [Suspect]
     Indication: IMMUNODEFICIENCY COMMON VARIABLE
     Dosage: 8G WEEKLY SQ
     Route: 058
     Dates: start: 20110526, end: 20130611

REACTIONS (2)
  - Hypersensitivity [None]
  - Swollen tongue [None]
